FAERS Safety Report 15948472 (Version 1)
Quarter: 2019Q1

REPORT INFORMATION
  Report Type: Spontaneous
  Country: CZ (occurrence: CZ)
  Receive Date: 20190212
  Receipt Date: 20190212
  Transmission Date: 20190417
  Serious: Yes (Other)
  Sender: FDA-Public Use
  Company Number: CZ-ACCORD-106691

PATIENT
  Age: 28 Year
  Sex: Female
  Weight: 60 kg

DRUGS (3)
  1. DEXONA [Concomitant]
     Active Substance: DEXAMETHASONE
     Dosage: 8MG IV IN PHYSIOLOGICAL SALINE
     Route: 041
  2. FORTECORTIN [Concomitant]
     Active Substance: DEXAMETHASONE
     Dosage: PREPARATION FOR ADMINISTRATION OF DOCETAXEL ACCORD. 8MG IN THE EVENING BEFORE AND IN THE MORNING.
     Route: 048
  3. DOCETAXEL ACCORD [Suspect]
     Active Substance: DOCETAXEL
     Indication: PRODUCT USED FOR UNKNOWN INDICATION
     Dosage: FORTECORTINEM 8 MG BID
     Route: 042
     Dates: start: 20180518, end: 20180518

REACTIONS (5)
  - Heart rate decreased [Recovering/Resolving]
  - Blood pressure decreased [Recovering/Resolving]
  - Anaphylactic reaction [Recovering/Resolving]
  - Dyspnoea [Recovering/Resolving]
  - Flushing [Recovering/Resolving]

NARRATIVE: CASE EVENT DATE: 20180518
